FAERS Safety Report 13819335 (Version 2)
Quarter: 2018Q1

REPORT INFORMATION
  Report Type: Report from Study
  Country: US (occurrence: US)
  Receive Date: 20170731
  Receipt Date: 20180201
  Transmission Date: 20180508
  Serious: No
  Sender: FDA-Public Use
  Company Number: US-EXELIXIS-CABO-17007895

PATIENT
  Sex: Male
  Weight: 68.27 kg

DRUGS (22)
  1. METOPROLOL. [Concomitant]
     Active Substance: METOPROLOL
  2. SYNTHROID [Concomitant]
     Active Substance: LEVOTHYROXINE SODIUM
  3. AMLODIPINE [Concomitant]
     Active Substance: AMLODIPINE BESYLATE
  4. DORZOLAMIDE [Concomitant]
     Active Substance: DORZOLAMIDE
  5. CLONIDINE. [Concomitant]
     Active Substance: CLONIDINE
  6. CABOMETYX [Suspect]
     Active Substance: CABOZANTINIB S-MALATE
     Indication: RENAL CANCER
     Dosage: 40 MG, QD
     Route: 048
     Dates: start: 20161226
  7. ISOSORBIDE. [Concomitant]
     Active Substance: ISOSORBIDE
  8. AMIODARONE [Concomitant]
     Active Substance: AMIODARONE
  9. ATORVASTATIN [Concomitant]
     Active Substance: ATORVASTATIN
  10. MINOXIDIL. [Concomitant]
     Active Substance: MINOXIDIL
  11. CEFPODOXIME [Concomitant]
     Active Substance: CEFPODOXIME
  12. DIAZEPAM. [Concomitant]
     Active Substance: DIAZEPAM
  13. LOSARTAN POTASSIUM. [Concomitant]
     Active Substance: LOSARTAN POTASSIUM
  14. TOPROL XL [Concomitant]
     Active Substance: METOPROLOL SUCCINATE
  15. DILTIAZEM. [Concomitant]
     Active Substance: DILTIAZEM
  16. VOTRIENT [Concomitant]
     Active Substance: PAZOPANIB HYDROCHLORIDE
  17. FUROSEMIDE. [Concomitant]
     Active Substance: FUROSEMIDE
  18. LANTUS [Concomitant]
     Active Substance: INSULIN GLARGINE
  19. CEPHALEXIN. [Concomitant]
     Active Substance: CEPHALEXIN
  20. LATANOPROST. [Concomitant]
     Active Substance: LATANOPROST
  21. TRAMADOL. [Concomitant]
     Active Substance: TRAMADOL
  22. FLUTICASONE. [Concomitant]
     Active Substance: FLUTICASONE

REACTIONS (3)
  - Fluid retention [Unknown]
  - Stomatitis [Unknown]
  - Genital rash [Unknown]
